FAERS Safety Report 9058961 (Version 1)
Quarter: 2013Q1

REPORT INFORMATION
  Report Type: Spontaneous
  Country: US (occurrence: US)
  Receive Date: 20130211
  Receipt Date: 20130211
  Transmission Date: 20140127
  Serious: No
  Sender: FDA-Public Use
  Company Number: US-BRISTOL-MYERS SQUIBB COMPANY-16449100

PATIENT
  Age: 18 Year
  Sex: Female

DRUGS (3)
  1. GLUCOPHAGE [Suspect]
     Indication: BLOOD GLUCOSE INCREASED
     Dosage: 1 DF: 1000 UNITS
     Route: 065
     Dates: start: 1995
  2. AMARYL [Suspect]
     Indication: BLOOD GLUCOSE INCREASED
     Dosage: 17 YEARS AGO,TABS
     Route: 048
     Dates: start: 1995
  3. INSULIN GLARGINE [Concomitant]
     Dosage: INSULIN GLARGINE PEN 3 YEARS AGO(2009)

REACTIONS (3)
  - Pregnancy [Unknown]
  - Weight increased [Unknown]
  - Drug ineffective [Unknown]
